FAERS Safety Report 7586674-5 (Version None)
Quarter: 2011Q3

REPORT INFORMATION
  Report Type: 
  Country: None (occurrence: None)
  Receive Date: 20110701
  Receipt Date: 20110622
  Transmission Date: 20111222
  Serious: Yes (Hospitalization, Other)
  Sender: FDA-Public Use
  Company Number: US-ELI_LILLY_AND_COMPANY-US200804004818

PATIENT
  Sex: Female

DRUGS (7)
  1. METFORMIN HCL [Concomitant]
     Indication: DIABETES MELLITUS
     Dosage: 1000 MG, 2/D
     Route: 048
     Dates: end: 20080412
  2. GLYBURIDE [Concomitant]
     Indication: DIABETES MELLITUS
     Dosage: 5 MG, 2/D
     Route: 048
     Dates: end: 20080412
  3. BYETTA [Suspect]
     Indication: TYPE 2 DIABETES MELLITUS
     Dosage: 5 UNK, 2/D
     Route: 058
     Dates: start: 20060727
  4. URSODIOL [Concomitant]
     Dosage: 300 MG, BID
     Route: 048
  5. BYETTA [Suspect]
     Dosage: 10 UG, 2/D
     Route: 058
     Dates: end: 20080412
  6. DIOVAN [Concomitant]
     Dosage: 160 MG, QD
     Route: 048
  7. PRAVACHOL [Concomitant]
     Dosage: 40 MG, QD
     Route: 048

REACTIONS (4)
  - BLOOD GLUCOSE INCREASED [None]
  - OFF LABEL USE [None]
  - HAEMATEMESIS [None]
  - PANCREATITIS [None]
